FAERS Safety Report 4485497-3 (Version None)
Quarter: 2004Q4

REPORT INFORMATION
  Report Type: 
  Country: None (occurrence: None)
  Receive Date: 20041026
  Receipt Date: 20041015
  Transmission Date: 20050328
  Serious: Yes (Other)
  Sender: FDA-Public Use
  Company Number: PHBS2004CH13703

PATIENT
  Sex: Female

DRUGS (10)
  1. SPERSACARPINE 2% (NVO) [Suspect]
     Indication: GLAUCOMA
     Dosage: 3 DRP/DAY
     Dates: start: 20040909, end: 20040910
  2. ELTROXIN [Suspect]
     Dosage: 50 MCG/D
     Route: 048
  3. EFFEXOR [Suspect]
     Route: 048
  4. IMOVANE [Concomitant]
     Route: 048
  5. VIOXX [Concomitant]
     Dosage: 25 MG/D
     Route: 048
  6. NORVASC [Concomitant]
     Dosage: 5 MG/D
     Route: 048
  7. COSOPT [Concomitant]
     Dosage: 2 DRP/D
     Route: 048
  8. SANDRENA [Concomitant]
     Route: 062
  9. PREMARIN [Concomitant]
     Route: 048
  10. STRUCTUM [Concomitant]
     Route: 048

REACTIONS (7)
  - AGGRESSION [None]
  - DIARRHOEA [None]
  - DRUG INTERACTION [None]
  - HEADACHE [None]
  - PERSONALITY DISORDER [None]
  - PYROMANIA [None]
  - VOMITING [None]
